FAERS Safety Report 8273942-7 (Version None)
Quarter: 2012Q2

REPORT INFORMATION
  Report Type: 
  Country: None (occurrence: None)
  Receive Date: 20120411
  Receipt Date: 20120410
  Transmission Date: 20120825
  Serious: No
  Sender: FDA-Public Use
  Company Number: US-B.I. PHARMACEUTICALS,INC./RIDGEFIELD-2011-BP-09762BP

PATIENT
  Sex: Female

DRUGS (8)
  1. JOINT JUICE [Suspect]
     Indication: PROPHYLAXIS
     Route: 048
  2. LOSARTAN POTASSIUM [Suspect]
     Indication: HYPERTENSION
     Dosage: 50 MG
     Route: 048
     Dates: start: 20110316, end: 20110422
  3. XALATAN [Concomitant]
     Indication: GLAUCOMA
     Dates: start: 20020101
  4. LOSARTAN POTASSIUM [Suspect]
     Dosage: 25 MG
     Route: 048
     Dates: start: 20110423
  5. SIMVASTATIN [Concomitant]
     Indication: BLOOD CHOLESTEROL INCREASED
     Dosage: 40 MG
     Route: 048
     Dates: start: 20070101
  6. ANTIBIOTIC [Concomitant]
     Indication: OROPHARYNGEAL PAIN
     Route: 048
  7. PRADAXA [Suspect]
     Indication: ATRIAL FIBRILLATION
     Dosage: 300 MG
     Route: 048
     Dates: start: 20110316
  8. ATENOLOL [Concomitant]
     Indication: CARDIAC DISORDER
     Dosage: 25 MG
     Route: 048
     Dates: start: 20070101

REACTIONS (12)
  - ABDOMINAL PAIN [None]
  - DIZZINESS [None]
  - COUGH [None]
  - WRONG TECHNIQUE IN DRUG USAGE PROCESS [None]
  - PHOTOPHOBIA [None]
  - NERVOUSNESS [None]
  - HEADACHE [None]
  - HYPERTENSION [None]
  - SINUS HEADACHE [None]
  - INCREASED UPPER AIRWAY SECRETION [None]
  - THROAT IRRITATION [None]
  - OROPHARYNGEAL PAIN [None]
